FAERS Safety Report 15042944 (Version 1)
Quarter: 2018Q2

REPORT INFORMATION
  Report Type: Spontaneous
  Country: IN (occurrence: IN)
  Receive Date: 20180621
  Receipt Date: 20180621
  Transmission Date: 20180711
  Serious: Yes (Other)
  Sender: FDA-Public Use
  Company Number: IN-PFIZER INC-2016537382

PATIENT
  Age: 60 Year
  Sex: Female
  Weight: 51 kg

DRUGS (9)
  1. PALBACE [Suspect]
     Active Substance: PALBOCICLIB
     Indication: BREAST CANCER METASTATIC
     Dosage: 125 MG, 1X/DAY
     Route: 048
     Dates: start: 20161025, end: 20171206
  2. FASLODEX [Concomitant]
     Active Substance: FULVESTRANT
     Dosage: 250 MG, 2X/DAY
     Dates: start: 20161105
  3. FASLODEX [Concomitant]
     Active Substance: FULVESTRANT
     Indication: BREAST CANCER
     Dosage: 500 MG, UNK
  4. FASLODEX [Concomitant]
     Active Substance: FULVESTRANT
     Dosage: 250 MG, 2X/DAY
     Dates: start: 20161119
  5. LETROZOLE. [Concomitant]
     Active Substance: LETROZOLE
     Dosage: UNK
  6. PALBACE [Suspect]
     Active Substance: PALBOCICLIB
     Dosage: 125 MG, 1X/DAY
     Route: 048
     Dates: start: 20161026, end: 20161115
  7. PALBACE [Suspect]
     Active Substance: PALBOCICLIB
     Dosage: 125 MG, 1X/DAY
     Route: 048
     Dates: start: 20161116, end: 20161213
  8. ZOLEDRONIC ACID. [Concomitant]
     Active Substance: ZOLEDRONIC ACID
     Dosage: UNK
     Dates: start: 20170816
  9. FASLODEX [Concomitant]
     Active Substance: FULVESTRANT
     Dosage: 250 MG, UNK
     Dates: start: 20170930

REACTIONS (12)
  - Pyrexia [Unknown]
  - Abdominal pain [Unknown]
  - Neoplasm progression [Unknown]
  - Vomiting [Unknown]
  - Weight decreased [Unknown]
  - Nephrolithiasis [Unknown]
  - Urinary tract infection bacterial [Unknown]
  - Back pain [Unknown]
  - Headache [Unknown]
  - Hydronephrosis [Unknown]
  - Chloasma [Unknown]
  - Dyspnoea [Unknown]

NARRATIVE: CASE EVENT DATE: 201611
